FAERS Safety Report 12263072 (Version 1)
Quarter: 2016Q2

REPORT INFORMATION
  Report Type: Spontaneous
  Country: US (occurrence: US)
  Receive Date: 20160413
  Receipt Date: 20160413
  Transmission Date: 20160815
  Serious: Yes (Death)
  Sender: FDA-Public Use
  Company Number: US-JNJFOC-20160410542

PATIENT
  Sex: Male

DRUGS (1)
  1. ZYTIGA [Suspect]
     Active Substance: ABIRATERONE ACETATE
     Indication: PROSTATE CANCER
     Route: 048
     Dates: start: 20141017, end: 20160409

REACTIONS (1)
  - Death [Fatal]
